FAERS Safety Report 5202201-1 (Version None)
Quarter: 2006Q4

REPORT INFORMATION
  Report Type: 
  Country: None (occurrence: None)
  Receive Date: 20061010
  Receipt Date: 20060317
  Transmission Date: 20070319
  Serious: Yes (Hospitalization)
  Sender: FDA-Public Use
  Company Number: 2006P1000228

PATIENT
  Age: 61 Year
  Sex: Female
  Weight: 70 kg

DRUGS (9)
  1. RETEPLASE (RETEPLASE) [Suspect]
     Indication: ACUTE MYOCARDIAL INFARCTION
     Dosage: IV
     Route: 042
     Dates: start: 20041202, end: 20041202
  2. ABCIXIMAB (ABCIXIMAB) [Suspect]
     Indication: ACUTE MYOCARDIAL INFARCTION
     Dosage: IV
     Route: 042
     Dates: start: 20041202, end: 20041202
  3. OMEPRAZOLE [Concomitant]
  4. ASPIRIN [Concomitant]
  5. CLOPIDOGREL [Concomitant]
  6. ATORVASTATIN CALCIUM [Concomitant]
  7. METOPROLOL SUCCINATE [Concomitant]
  8. BENDROFLUMETHIAZIDE [Concomitant]
  9. ATENOLOL [Concomitant]

REACTIONS (1)
  - PULMONARY OEDEMA [None]
